FAERS Safety Report 6934771-7 (Version None)
Quarter: 2010Q3

REPORT INFORMATION
  Report Type: 
  Country: None (occurrence: None)
  Receive Date: 20100820
  Receipt Date: 20100805
  Transmission Date: 20110219
  Serious: Yes (Hospitalization, Other)
  Sender: FDA-Public Use
  Company Number: PHHY2009CA01104

PATIENT
  Sex: Female

DRUGS (2)
  1. SANDOSTATIN LAR [Suspect]
     Indication: ACROMEGALY
     Dosage: 20 MG, QMO
     Route: 030
     Dates: start: 20081212
  2. SANDOSTATIN LAR [Suspect]
     Dosage: 30 MG, QMO
     Route: 030
     Dates: end: 20090311

REACTIONS (5)
  - BLOOD PRESSURE SYSTOLIC INCREASED [None]
  - CATARACT OPERATION [None]
  - GASTROINTESTINAL DISORDER [None]
  - INTESTINAL OBSTRUCTION [None]
  - INTESTINAL OPERATION [None]
